FAERS Safety Report 21756274 (Version 2)
Quarter: 2023Q2

REPORT INFORMATION
  Report Type: Spontaneous
  Country: IT (occurrence: IT)
  Receive Date: 20221220
  Receipt Date: 20230622
  Transmission Date: 20230721
  Serious: No
  Sender: FDA-Public Use
  Company Number: IT-PHARMAMAR-2022PM000362

PATIENT
  Age: 56 Year
  Sex: Female

DRUGS (8)
  1. ZEPZELCA [Suspect]
     Active Substance: LURBINECTEDIN
     Indication: Ovarian cancer
     Dosage: 3.2 MILLIGRAM/SQ. METER, Q3W
     Route: 042
     Dates: start: 20220713, end: 20220824
  2. DEXAMETHASONE [Suspect]
     Active Substance: DEXAMETHASONE
     Indication: Premedication
     Dosage: 12 MILLIGRAM
     Route: 042
     Dates: start: 20220803, end: 20220804
  3. LEVOTHYROXINE SODIUM [Concomitant]
     Active Substance: LEVOTHYROXINE SODIUM
     Indication: Autoimmune thyroiditis
     Dosage: 25 MICROGRAM, QD
  4. PREDNISONE [Concomitant]
     Active Substance: PREDNISONE
     Indication: Premedication
     Dosage: 75 MILLIGRAM
     Dates: start: 20220824, end: 20220824
  5. HYDROCORTISONE SODIUM SUCCINATE [Concomitant]
     Active Substance: HYDROCORTISONE SODIUM SUCCINATE
     Dosage: UNK
     Dates: start: 20220803, end: 20220803
  6. TRIMETON [Concomitant]
     Active Substance: CHLORPHENIRAMINE MALEATE
     Dosage: UNK
     Dates: start: 20220803, end: 20220824
  7. SODIUM CHLORIDE [Concomitant]
     Active Substance: SODIUM CHLORIDE
     Dosage: 100 MILLILITER
  8. PALONOSETRON [Concomitant]
     Active Substance: PALONOSETRON
     Dosage: 250 MICROGRAM, IV BOLUS
     Route: 042

REACTIONS (8)
  - Tachycardia [Recovered/Resolved]
  - Hyperhidrosis [Recovered/Resolved]
  - Feeling hot [Recovered/Resolved]
  - Chest discomfort [Recovered/Resolved]
  - Raynaud^s phenomenon [Unknown]
  - Peripheral coldness [Recovered/Resolved]
  - Anxiety [Recovered/Resolved]
  - Off label use [Unknown]

NARRATIVE: CASE EVENT DATE: 20220803
